FAERS Safety Report 9201897 (Version 2)
Quarter: 2013Q2

REPORT INFORMATION
  Report Type: Spontaneous
  Country: US (occurrence: None)
  Receive Date: 20130328
  Receipt Date: 20130403
  Transmission Date: 20140414
  Serious: Yes (Hospitalization, Other)
  Sender: FDA-Public Use
  Company Number: 2013P1002977

PATIENT
  Age: 48 Year
  Sex: Female
  Weight: 95.26 kg

DRUGS (7)
  1. PREDNISONE [Suspect]
     Indication: CROHN^S DISEASE
     Route: 048
     Dates: start: 201302, end: 201303
  2. INDERAL [Concomitant]
  3. HYDRALAZINE [Concomitant]
  4. ESTRADIOL [Concomitant]
  5. XANAX [Concomitant]
  6. DEXILANT [Concomitant]
  7. ONE A DAY VITAMIN [Concomitant]

REACTIONS (4)
  - Crohn^s disease [None]
  - Blood glucose increased [None]
  - Rash [None]
  - Rash [None]
